FAERS Safety Report 17857172 (Version 8)
Quarter: 2020Q4

REPORT INFORMATION
  Report Type: Report from Study
  Country: None (occurrence: US)
  Receive Date: 20200603
  Receipt Date: 20201211
  Transmission Date: 20210113
  Serious: Yes (Other)
  Sender: FDA-Public Use
  Company Number: US-ABBVIE-20K-163-3422773-00

PATIENT
  Sex: Male

DRUGS (3)
  1. RINVOQ [Suspect]
     Active Substance: UPADACITINIB
     Indication: PRODUCT USED FOR UNKNOWN INDICATION
     Route: 048
  2. PREDNISONE. [Concomitant]
     Active Substance: PREDNISONE
     Indication: PRODUCT USED FOR UNKNOWN INDICATION
  3. ACTEMRA [Concomitant]
     Active Substance: TOCILIZUMAB
     Indication: PRODUCT USED FOR UNKNOWN INDICATION

REACTIONS (20)
  - Plantar fasciitis [Not Recovered/Not Resolved]
  - Joint noise [Not Recovered/Not Resolved]
  - Nasopharyngitis [Unknown]
  - Post laminectomy syndrome [Recovered/Resolved]
  - Acne [Recovered/Resolved]
  - Neuropathy peripheral [Not Recovered/Not Resolved]
  - Infection susceptibility increased [Recovered/Resolved]
  - Neck pain [Not Recovered/Not Resolved]
  - Skin infection [Not Recovered/Not Resolved]
  - Pain in extremity [Not Recovered/Not Resolved]
  - Insomnia [Not Recovered/Not Resolved]
  - Stenosis [Unknown]
  - Pain [Not Recovered/Not Resolved]
  - Back pain [Recovering/Resolving]
  - Arthralgia [Not Recovered/Not Resolved]
  - Injury [Recovered/Resolved]
  - Localised infection [Recovered/Resolved]
  - Condition aggravated [Not Recovered/Not Resolved]
  - Staphylococcal infection [Recovered/Resolved]
  - Diabetes mellitus [Not Recovered/Not Resolved]
